FAERS Safety Report 4447862-X (Version None)
Quarter: 2004Q3

REPORT INFORMATION
  Report Type: 
  Country: None (occurrence: None)
  Receive Date: 20040812
  Receipt Date: 20040601
  Transmission Date: 20050211
  Serious: No
  Sender: FDA-Public Use
  Company Number: USA040669010

PATIENT
  Sex: Male

DRUGS (2)
  1. CIALIS [Suspect]
     Indication: ERECTILE DYSFUNCTION
     Dates: start: 20040501, end: 20040501
  2. GAMMA-AMINOBUTYRIC ACID [Concomitant]

REACTIONS (1)
  - BLOOD PRESSURE INCREASED [None]
